FAERS Safety Report 23432159 (Version 2)
Quarter: 2024Q1

REPORT INFORMATION
  Report Type: Report from Study
  Country: CA (occurrence: CA)
  Receive Date: 20240123
  Receipt Date: 20240129
  Transmission Date: 20240410
  Serious: Yes (Hospitalization)
  Sender: FDA-Public Use
  Company Number: CA-ABBVIE-5594532

PATIENT
  Sex: Male

DRUGS (1)
  1. LUPRON [Suspect]
     Active Substance: LEUPROLIDE ACETATE
     Indication: Prostate cancer
     Route: 065
     Dates: start: 20231024

REACTIONS (5)
  - Arthropod bite [Not Recovered/Not Resolved]
  - Skin exfoliation [Unknown]
  - Asthenia [Recovering/Resolving]
  - Delirium [Not Recovered/Not Resolved]
  - Dry skin [Unknown]
